FAERS Safety Report 4776460-3 (Version None)
Quarter: 2005Q3

REPORT INFORMATION
  Report Type: 
  Country: None (occurrence: None)
  Receive Date: 20050915
  Receipt Date: 20050831
  Transmission Date: 20060218
  Serious: Yes (Hospitalization)
  Sender: FDA-Public Use
  Company Number: 2005P1000336

PATIENT
  Age: 51 Year
  Sex: Female

DRUGS (11)
  1. RETEVASE [Suspect]
     Indication: MYOCARDIAL INFARCTION
     Dosage: IV
     Route: 042
     Dates: start: 20050201
  2. ABCIXIMAB (ABCIXIMAB) [Suspect]
     Indication: MYOCARDIAL INFARCTION
     Dosage: IV
     Route: 042
     Dates: start: 20050201
  3. METOPROLOL [Concomitant]
  4. ENALAPRIL [Concomitant]
  5. ASPIRIN [Concomitant]
  6. SIMVASTATIN [Concomitant]
  7. ICLOPIDINE [Concomitant]
  8. LANSOPRAZOLE [Concomitant]
  9. INDAPAMIDE [Concomitant]
  10. OMEPRAZOLE [Concomitant]
  11. CILAZAPRIL [Concomitant]

REACTIONS (4)
  - ANGINA PECTORIS [None]
  - BLOOD CREATINE PHOSPHOKINASE INCREASED [None]
  - HYPERTENSION [None]
  - TROPONIN I INCREASED [None]
